FAERS Safety Report 23784212 (Version 4)
Quarter: 2025Q1

REPORT INFORMATION
  Report Type: Spontaneous
  Country: GB (occurrence: GB)
  Receive Date: 20240425
  Receipt Date: 20250103
  Transmission Date: 20250408
  Serious: Yes (Hospitalization)
  Sender: MYLAN
  Company Number: GB-MYLANLABS-2024M1037425

PATIENT
  Sex: Male
  Weight: 111.2 kg

DRUGS (8)
  1. CLOZARIL [Suspect]
     Active Substance: CLOZAPINE
     Indication: Schizophrenia
     Dosage: 100 MILLIGRAM, AM (DAILY SLOW TITRATION RESULTING IN FINAL DOSE OF 100 MILLIGRAMS)
     Route: 048
     Dates: start: 20240124
  2. CLOZARIL [Suspect]
     Active Substance: CLOZAPINE
     Dosage: 125 MILLIGRAM, PM (DAILY SLOW TITRATION RESULTING IN FINAL DOSE OF 125 MILLIGRAMS)
     Route: 048
     Dates: start: 20240124
  3. CLOZARIL [Suspect]
     Active Substance: CLOZAPINE
     Route: 048
     Dates: start: 20240122
  4. BISOPROLOL [Concomitant]
     Active Substance: BISOPROLOL
     Indication: Tachycardia
     Route: 048
  5. LITHIUM [Concomitant]
     Active Substance: LITHIUM
     Indication: Mood altered
     Route: 048
     Dates: start: 20231116
  6. LORAZEPAM [Concomitant]
     Active Substance: LORAZEPAM
     Indication: Agitation
     Route: 048
     Dates: start: 20240126
  7. AMISULPRIDE [Concomitant]
     Active Substance: AMISULPRIDE
     Dosage: 300 MILLIGRAM, BID
     Route: 048
     Dates: end: 20240219
  8. AMISULPRIDE [Concomitant]
     Active Substance: AMISULPRIDE
     Dosage: 100 MILLIGRAM, BID
     Route: 048
     Dates: start: 20240513

REACTIONS (2)
  - Psychotic disorder [Recovering/Resolving]
  - Benign ethnic neutropenia [Unknown]
